FAERS Safety Report 9739368 (Version 1)
Quarter: 2013Q4

REPORT INFORMATION
  Report Type: Spontaneous
  Country: US (occurrence: US)
  Receive Date: 20131209
  Receipt Date: 20131209
  Transmission Date: 20140711
  Serious: No
  Sender: FDA-Public Use
  Company Number: US-GLAXOSMITHKLINE-A1002901A

PATIENT
  Sex: Female

DRUGS (1)
  1. AVANDAMET [Suspect]
     Route: 048

REACTIONS (3)
  - Cardiac disorder [Unknown]
  - Heart rate increased [Unknown]
  - Poor quality sleep [Unknown]
